FAERS Safety Report 24095816 (Version 1)
Quarter: 2024Q3

REPORT INFORMATION
  Report Type: Spontaneous
  Country: RU (occurrence: RU)
  Receive Date: 20240716
  Receipt Date: 20240716
  Transmission Date: 20241016
  Serious: Yes (Other)
  Sender: HETERO
  Company Number: RU-AMAROX PHARMA-HET2024RU02219

PATIENT
  Sex: Female
  Weight: 52 kg

DRUGS (1)
  1. NEVIRAPINE [Suspect]
     Active Substance: NEVIRAPINE
     Indication: HIV infection
     Dosage: 200 MILLIGRAM (1 INTAKE 1 TABLET, DOSE FREQUENCY 2 DAYS)
     Route: 048
     Dates: start: 20240221, end: 20240321

REACTIONS (2)
  - Dermatitis allergic [Recovering/Resolving]
  - Toxic skin eruption [Recovering/Resolving]

NARRATIVE: CASE EVENT DATE: 20240321
